FAERS Safety Report 7244879-7 (Version None)
Quarter: 2011Q1

REPORT INFORMATION
  Report Type: 
  Country: None (occurrence: None)
  Receive Date: 20110126
  Receipt Date: 20110117
  Transmission Date: 20110831
  Serious: Yes (Hospitalization, Other)
  Sender: FDA-Public Use
  Company Number: US-TEVA-254558USA

PATIENT
  Sex: Female

DRUGS (2)
  1. CLOZAPINE [Suspect]
     Indication: SCHIZOAFFECTIVE DISORDER
     Route: 048
  2. LITHIUM [Suspect]
     Dates: end: 20101101

REACTIONS (4)
  - URETERIC OBSTRUCTION [None]
  - BLOOD POTASSIUM INCREASED [None]
  - RENAL FAILURE CHRONIC [None]
  - HYDRONEPHROSIS [None]
